FAERS Safety Report 13161710 (Version 3)
Quarter: 2017Q2

REPORT INFORMATION
  Report Type: Spontaneous
  Country: JP (occurrence: JP)
  Receive Date: 20170130
  Receipt Date: 20170419
  Transmission Date: 20170830
  Serious: Yes (Other)
  Sender: FDA-Public Use
  Company Number: JP-009507513-1701JPN001885J

PATIENT
  Age: 85 Year
  Sex: Male
  Weight: 54 kg

DRUGS (16)
  1. ANCARON [Suspect]
     Active Substance: AMIODARONE HYDROCHLORIDE
     Indication: VENTRICULAR ARRHYTHMIA
     Dosage: 750 MG, QD
     Route: 042
     Dates: start: 20161118, end: 20161121
  2. AMIODARONE HYDROCHLORIDE. [Suspect]
     Active Substance: AMIODARONE HYDROCHLORIDE
     Indication: VENTRICULAR ARRHYTHMIA
     Dosage: 100-200MG, QD
     Route: 048
     Dates: start: 20161122, end: 20170214
  3. ROZEREM [Concomitant]
     Active Substance: RAMELTEON
     Indication: INSOMNIA
     Dosage: 8 MG, QD
     Route: 048
     Dates: start: 20161117, end: 20170214
  4. CALCICOL [Concomitant]
     Active Substance: CALCIUM GLUCONATE
     Indication: ELECTROLYTE IMBALANCE
     Dosage: 10 ML, QD
     Route: 042
     Dates: start: 20161120, end: 20161209
  5. FEBURIC [Concomitant]
     Active Substance: FEBUXOSTAT
     Indication: GOUT
     Dosage: 10 MG, QD
     Route: 048
     Dates: start: 20161122, end: 20170214
  6. HEPARIN SODIUM. [Concomitant]
     Active Substance: HEPARIN SODIUM
     Indication: THROMBOSIS PROPHYLAXIS
     Dosage: 5000-10000IU/DAY
     Route: 042
     Dates: start: 20161117, end: 20161121
  7. HEPARIN SODIUM. [Concomitant]
     Active Substance: HEPARIN SODIUM
     Dosage: 5000-10000IU/DAY
     Route: 042
     Dates: start: 20161124, end: 20170214
  8. SAMSCA [Concomitant]
     Active Substance: TOLVAPTAN
     Indication: CARDIAC FAILURE
     Dosage: 7.5 MG, QD
     Route: 048
     Dates: start: 20161122, end: 20170214
  9. BIOFERMIN R [Concomitant]
     Active Substance: BACILLUS SUBTILIS\LACTOBACILLUS ACIDOPHILUS\STREPTOCOCCUS FAECAIS
     Indication: GASTROINTESTINAL DISORDER THERAPY
     Dosage: 1 DF, TID
     Route: 048
     Dates: start: 20161118, end: 20170214
  10. NEXIUM [Concomitant]
     Active Substance: ESOMEPRAZOLE MAGNESIUM
     Indication: GASTRODUODENAL ULCER
     Dosage: 20 MG, QD
     Route: 048
     Dates: start: 20161122, end: 20170214
  11. LASIX [Concomitant]
     Active Substance: FUROSEMIDE
     Indication: CARDIAC FAILURE
     Dosage: 20-120MG, QD
     Route: 042
     Dates: start: 20161117, end: 20170214
  12. POTASSIUM CANRENOATE [Concomitant]
     Active Substance: CANRENOATE POTASSIUM
     Indication: CARDIAC FAILURE
     Dosage: 100 MG, TID
     Route: 048
     Dates: start: 20161117, end: 20161123
  13. CUBICIN [Suspect]
     Active Substance: DAPTOMYCIN
     Indication: STAPHYLOCOCCAL INFECTION
     Dosage: 350 MG, QD
     Route: 041
     Dates: start: 20161118, end: 20161123
  14. HANP [Concomitant]
     Active Substance: CARPERITIDE
     Indication: CARDIAC FAILURE
     Dosage: 5-10MICRO-GRAM/MIN,CONTINUOUS INFUSION
     Route: 041
     Dates: start: 20161119, end: 20161123
  15. BELSOMRA [Concomitant]
     Active Substance: SUVOREXANT
     Indication: INSOMNIA
     Dosage: 15 MG, QD
     Route: 048
     Dates: start: 20161122, end: 20170214
  16. TALION [Concomitant]
     Active Substance: BEPOTASTINE
     Indication: PRURITUS
     Dosage: 10 MG, BID
     Route: 048
     Dates: start: 20161118, end: 20170214

REACTIONS (3)
  - Cytomegalovirus test positive [Unknown]
  - Cholestasis [Recovered/Resolved]
  - Rheumatoid factor positive [Unknown]

NARRATIVE: CASE EVENT DATE: 20161123
